FAERS Safety Report 4448361-1 (Version None)
Quarter: 2004Q3

REPORT INFORMATION
  Report Type: 
  Country: None (occurrence: None)
  Receive Date: 20040910
  Receipt Date: 20040910
  Transmission Date: 20050211
  Serious: No
  Sender: FDA-Public Use
  Company Number: None

PATIENT
  Sex: Male
  Weight: 74.8435 kg

DRUGS (14)
  1. PLAVIX [Suspect]
     Indication: CORONARY ARTERIAL STENT INSERTION
     Dosage: ONE DAY - I BELIEVE ORAL
     Route: 048
  2. FOLIC ACID [Concomitant]
  3. B-6 [Concomitant]
  4. B-12 [Concomitant]
  5. GLUCOPHAGE [Concomitant]
  6. RANITIDINE [Concomitant]
  7. ATENOLOL [Concomitant]
  8. LEVBID [Concomitant]
  9. LIPITOR [Concomitant]
  10. ASPIRIN [Concomitant]
  11. FOLIC ACID [Concomitant]
  12. GLUCOPHAGE [Concomitant]
  13. RANITIDINE [Concomitant]
  14. NIASPAN [Concomitant]

REACTIONS (2)
  - CHEST PAIN [None]
  - DYSPEPSIA [None]
